FAERS Safety Report 8780705 (Version 1)
Quarter: 2012Q4

REPORT INFORMATION
  Report Type: Report from Study
  Country: CA (occurrence: CA)
  Receive Date: 20120913
  Receipt Date: 20120913
  Transmission Date: 20130627
  Serious: Yes (Other)
  Sender: FDA-Public Use
  Company Number: CA-JNJFOC-20120901518

PATIENT
  Age: 56 Year
  Sex: Male
  Weight: 60 kg

DRUGS (6)
  1. REMICADE [Suspect]
     Indication: CROHN^S DISEASE
     Dosage: second loading dose
     Route: 042
     Dates: start: 20120904
  2. REMICADE [Suspect]
     Indication: CROHN^S DISEASE
     Route: 042
     Dates: start: 201208
  3. PREDNISONE [Concomitant]
     Dosage: formulation: pills
     Route: 065
  4. COUMADIN [Concomitant]
     Route: 065
  5. METFORMIN [Concomitant]
     Route: 065
  6. LIPITOR [Concomitant]
     Route: 065

REACTIONS (8)
  - Blood glucose increased [Unknown]
  - Dyspnoea [Unknown]
  - Proctalgia [Unknown]
  - Chest pain [Unknown]
  - Infusion related reaction [Unknown]
  - Eye movement disorder [Unknown]
  - Hypoaesthesia oral [Unknown]
  - Lethargy [Unknown]
